FAERS Safety Report 16027072 (Version 1)
Quarter: 2019Q1

REPORT INFORMATION
  Report Type: Spontaneous
  Country: US (occurrence: US)
  Receive Date: 20190303
  Receipt Date: 20190303
  Transmission Date: 20190418
  Serious: No
  Sender: FDA-Public Use
  Company Number: US-IMPAX LABORATORIES, LLC-2018-IPXL-00534

PATIENT
  Age: 72 Year
  Sex: Male

DRUGS (2)
  1. RYTARY [Suspect]
     Active Substance: CARBIDOPA\LEVODOPA
     Indication: PARKINSON^S DISEASE
     Dosage: 23.75/95 MG, 3 CAPSULES, 4 TIMES DAILY
     Route: 048
  2. RYTARY [Suspect]
     Active Substance: CARBIDOPA\LEVODOPA
     Dosage: 23.75/95 MG, 4 CAPSULES, 4 TIMES  8 AM, 11 AM, 2 PM,5 PM
     Route: 048

REACTIONS (1)
  - Drug ineffective [Unknown]
